FAERS Safety Report 17021163 (Version 3)
Quarter: 2020Q1

REPORT INFORMATION
  Report Type: Spontaneous
  Country: ES (occurrence: ES)
  Receive Date: 20191112
  Receipt Date: 20200205
  Transmission Date: 20200409
  Serious: Yes (Other)
  Sender: FDA-Public Use
  Company Number: ES-MYLANLABS-2019M1106791

PATIENT
  Age: 60 Year
  Sex: Male

DRUGS (1)
  1. MOLAXOLE POLVO PARA SOLUCI?N ORAL EFG [Suspect]
     Active Substance: POLYETHYLENE GLYCOL 3350\POTASSIUM CHLORIDE\SODIUM BICARBONATE\SODIUM CHLORIDE
     Indication: CONSTIPATION
     Dosage: TREATMENT DURATION: 1 WEEK
     Route: 048

REACTIONS (3)
  - Diarrhoea haemorrhagic [Recovered/Resolved]
  - Discomfort [Recovered/Resolved]
  - Frequent bowel movements [Recovered/Resolved]
